FAERS Safety Report 9518808 (Version 2)
Quarter: 2013Q3

REPORT INFORMATION
  Report Type: Spontaneous
  Country: US (occurrence: US)
  Receive Date: 20130912
  Receipt Date: 20130912
  Transmission Date: 20140515
  Serious: No
  Sender: FDA-Public Use
  Company Number: US-ABBOTT-13P-163-1066112-00

PATIENT
  Age: 81 Year
  Sex: Female
  Weight: 75.82 kg

DRUGS (7)
  1. DEPAKOTE SPRINKLE [Suspect]
     Indication: AGITATION
     Route: 048
     Dates: start: 20130315, end: 20130317
  2. DEPAKOTE SPRINKLE [Suspect]
     Indication: DEMENTIA
  3. FLORASTOR [Concomitant]
     Indication: CLOSTRIDIUM DIFFICILE INFECTION
  4. VANCOMYCIN [Concomitant]
     Indication: CLOSTRIDIUM DIFFICILE INFECTION
     Route: 048
  5. COUMADIN [Concomitant]
     Indication: PRODUCT USED FOR UNKNOWN INDICATION
     Route: 048
  6. METFORMIN [Concomitant]
     Indication: DIABETES MELLITUS
  7. NOVOLOG [Concomitant]
     Indication: DIABETES MELLITUS
     Dosage: 22U IN AM 25 U PM

REACTIONS (3)
  - Eye inflammation [Recovering/Resolving]
  - Ocular hyperaemia [Recovering/Resolving]
  - Rash [Recovering/Resolving]
